FAERS Safety Report 9821989 (Version 2)
Quarter: 2014Q1

REPORT INFORMATION
  Report Type: Spontaneous
  Country: DE (occurrence: DE)
  Receive Date: 20140116
  Receipt Date: 20140303
  Transmission Date: 20141002
  Serious: Yes (Life-Threatening, Hospitalization, Other)
  Sender: FDA-Public Use
  Company Number: DE-JNJFOC-20140106344

PATIENT
  Sex: Female

DRUGS (11)
  1. XARELTO [Suspect]
     Indication: ATRIAL FIBRILLATION
     Route: 048
     Dates: end: 20130823
  2. XARELTO [Suspect]
     Indication: CEREBROVASCULAR ACCIDENT PROPHYLAXIS
     Route: 048
     Dates: end: 20130823
  3. METOPROLOL [Concomitant]
     Route: 065
  4. LASIX [Concomitant]
     Route: 065
  5. ENALAPRIL [Concomitant]
     Route: 065
  6. L-THYROXINE [Concomitant]
     Route: 065
  7. ALLOPURINOL [Concomitant]
     Route: 065
  8. OMEPRAZOLE [Concomitant]
     Route: 065
  9. MOVICOL [Concomitant]
     Route: 065
  10. IBUPROFEN [Concomitant]
     Route: 065
  11. GLYCERYL TRINITRATE [Concomitant]
     Route: 065

REACTIONS (4)
  - Haemoglobin decreased [Unknown]
  - Overdose [Unknown]
  - Haemolytic anaemia [Unknown]
  - Lower gastrointestinal haemorrhage [Unknown]
